FAERS Safety Report 7306080-8 (Version None)
Quarter: 2011Q1

REPORT INFORMATION
  Report Type: 
  Country: None (occurrence: None)
  Receive Date: 20110222
  Receipt Date: 20110208
  Transmission Date: 20110831
  Serious: Yes (Hospitalization)
  Sender: FDA-Public Use
  Company Number: US-CELGENEUS-163-50794-10102526

PATIENT
  Age: 42 Year
  Sex: Male
  Weight: 73.9 kg

DRUGS (19)
  1. CYCLOPHOSPHAMIDE [Suspect]
     Route: 065
     Dates: start: 20101020
  2. VINCRISTINE [Suspect]
     Route: 051
     Dates: start: 20101023
  3. IRON SULFATETHIAMIN COMPOUND TAB [Concomitant]
     Route: 065
  4. OXYCODONE [Concomitant]
     Route: 065
  5. ASA [Concomitant]
     Route: 065
  6. RITUXIMAB [Suspect]
     Route: 051
     Dates: start: 20101024
  7. COLACE [Concomitant]
     Route: 065
  8. FAMCYCLOVIR [Concomitant]
     Route: 065
  9. PHENERGAN [Concomitant]
     Route: 065
  10. CAPTOPRIL [Concomitant]
     Route: 065
  11. VIDAZA [Suspect]
     Route: 065
     Dates: start: 20101105
  12. CYCLOPHOSPHAMIDE [Suspect]
     Route: 065
     Dates: start: 20101023
  13. ALLOPURINOL [Concomitant]
     Route: 065
  14. METHYLPREDNISOLONE ACETATE [Concomitant]
     Route: 065
  15. NITROGLYCERIN [Concomitant]
     Route: 065
  16. PROTONIX [Concomitant]
     Route: 065
  17. VIDAZA [Suspect]
     Route: 065
     Dates: start: 20101015, end: 20101019
  18. PLAVIX [Concomitant]
     Route: 065
  19. RBC'S [Concomitant]
     Dosage: 2 UNITS
     Route: 051

REACTIONS (3)
  - ANAEMIA [None]
  - PNEUMONIA [None]
  - CHRONIC OBSTRUCTIVE PULMONARY DISEASE [None]
